FAERS Safety Report 5567403-3 (Version None)
Quarter: 2007Q4

REPORT INFORMATION
  Report Type: 
  Country: None (occurrence: None)
  Receive Date: 20071214
  Receipt Date: 20071129
  Transmission Date: 20080405
  Serious: Yes (Other)
  Sender: FDA-Public Use
  Company Number: US021896

PATIENT
  Age: 72 Year
  Sex: Male

DRUGS (4)
  1. MODIODAL [Suspect]
     Indication: NARCOLEPSY
     Dosage: 150 MG QD ORAL
     Route: 048
     Dates: start: 20070903, end: 20071018
  2. ANAFRANIL [Concomitant]
  3. LENDORMIN [Concomitant]
  4. RIVOTRIL [Concomitant]

REACTIONS (2)
  - AMNESIA [None]
  - GAIT DISTURBANCE [None]
